FAERS Safety Report 22136976 (Version 1)
Quarter: 2023Q1

REPORT INFORMATION
  Report Type: Report from Study
  Country: CA (occurrence: CA)
  Receive Date: 20230324
  Receipt Date: 20230324
  Transmission Date: 20230417
  Serious: Yes (Hospitalization, Other)
  Sender: FDA-Public Use
  Company Number: CA-HLS-202300633

PATIENT
  Age: 62 Year
  Sex: Female

DRUGS (9)
  1. CLOZARIL [Suspect]
     Active Substance: CLOZAPINE
     Indication: Product used for unknown indication
     Dosage: 150 MG DAILY
     Route: 048
     Dates: start: 20160607
  2. SENNOSIDES [Concomitant]
     Active Substance: SENNOSIDES
     Indication: Product used for unknown indication
     Dosage: TAKE 2 TABLETS (24MG) AT BEDTIME
     Route: 065
  3. VITAMIN B12 [Concomitant]
     Active Substance: CYANOCOBALAMIN
     Indication: Product used for unknown indication
     Dosage: 1000MCG DAILY
     Route: 065
  4. QUETIAPINE FUMARATE [Concomitant]
     Active Substance: QUETIAPINE FUMARATE
     Indication: Product used for unknown indication
     Dosage: TAKE 2 TABLETS (50MG) AT BEDTIME
     Route: 065
  5. LITHIUM CARBONATE [Concomitant]
     Active Substance: LITHIUM CARBONATE
     Indication: Product used for unknown indication
     Dosage: 750MG DAILY AT BEDTIME
     Route: 065
  6. PANTOPRAZOLE MAGNESIUM [Concomitant]
     Active Substance: PANTOPRAZOLE MAGNESIUM
     Indication: Product used for unknown indication
     Dosage: TAKE 1 TABLET (40MG) AT BEDTIME
     Route: 065
  7. NITROFURANTOIN [Concomitant]
     Active Substance: NITROFURANTOIN
     Indication: Product used for unknown indication
     Dosage: TAKE 1 TABLET (50MG) DAILY
     Route: 065
  8. ACETAMINOPHEN [Concomitant]
     Active Substance: ACETAMINOPHEN
     Indication: Product used for unknown indication
     Dosage: TAKE 2 TABLETS ONCE A DAY
     Route: 065
  9. ATORVASTATIN [Concomitant]
     Active Substance: ATORVASTATIN
     Indication: Product used for unknown indication
     Dosage: TAKE 1 TABLET (40MG) EACH EVENING
     Route: 065

REACTIONS (10)
  - Abnormal behaviour [Unknown]
  - Gamma-glutamyltransferase increased [Recovered/Resolved]
  - Blood glucose increased [Not Recovered/Not Resolved]
  - High density lipoprotein decreased [Unknown]
  - Platelet count decreased [Unknown]
  - Mania [Unknown]
  - Osmolar gap increased [Unknown]
  - Blood osmolarity increased [Unknown]
  - Protein total increased [Recovered/Resolved]
  - Vitamin B12 increased [Unknown]

NARRATIVE: CASE EVENT DATE: 20221003
